FAERS Safety Report 7721373-8 (Version None)
Quarter: 2011Q3

REPORT INFORMATION
  Report Type: 
  Country: None (occurrence: None)
  Receive Date: 20110831
  Receipt Date: 20110823
  Transmission Date: 20111222
  Serious: Yes (Hospitalization, Other)
  Sender: FDA-Public Use
  Company Number: BR-ABBOTT-10P-020-0660420-00

PATIENT
  Sex: Female
  Weight: 60 kg

DRUGS (17)
  1. CLONAZEPAM [Concomitant]
     Indication: INSOMNIA
     Route: 048
  2. OMEPRAZOLE [Concomitant]
     Indication: PROPHYLAXIS
     Route: 048
  3. HUMIRA [Suspect]
     Indication: RHEUMATOID ARTHRITIS
     Route: 058
     Dates: start: 20100611
  4. CALCIUM CARBONATE [Concomitant]
     Indication: OSTEOPOROSIS
     Route: 048
  5. AGARICUS BLAZEI (COGUMELO DO SOL) [Concomitant]
     Indication: VITAMIN SUPPLEMENTATION
     Route: 048
  6. OMEGA-9 FATTY ACIDS AND OMEGA-3 FATTY ACIDS (FOREVER ARCTIC) [Concomitant]
     Indication: PRODUCT USED FOR UNKNOWN INDICATION
     Route: 048
  7. HUMIRA [Suspect]
  8. OMEPRAZOLE [Concomitant]
     Indication: GASTRIC DISORDER
  9. ALENDRONATE SODIUM [Concomitant]
     Indication: OSTEOPOROSIS
     Route: 048
  10. AMLODIPINE [Concomitant]
     Indication: HYPERTENSION
     Route: 048
  11. ATEOLOL [Concomitant]
     Indication: HYPERTENSION
     Route: 048
  12. METHOTREXATE [Concomitant]
     Indication: RHEUMATOID ARTHRITIS
     Route: 048
  13. AMITRIPTYLINE HYDROCHLORIDE [Concomitant]
     Indication: DEPRESSION
     Route: 048
  14. NOVOLIN 70/30 [Concomitant]
  15. DIVALPROEX SODIUM [Concomitant]
     Indication: DEPRESSION
     Route: 048
  16. DEFLAZACORT [Concomitant]
     Indication: RHEUMATOID ARTHRITIS
     Route: 048
  17. NOVOLIN 70/30 [Concomitant]
     Indication: DIABETES MELLITUS

REACTIONS (11)
  - INTESTINAL POLYP [None]
  - RHEUMATOID ARTHRITIS [None]
  - ABDOMINAL PAIN [None]
  - ILL-DEFINED DISORDER [None]
  - ERYTHEMA [None]
  - PRURITUS GENERALISED [None]
  - GASTROINTESTINAL HAEMORRHAGE [None]
  - LIVER DISORDER [None]
  - TREMOR [None]
  - GASTROINTESTINAL PAIN [None]
  - DRUG INEFFECTIVE [None]
